FAERS Safety Report 9055900 (Version 1)
Quarter: 2013Q1

REPORT INFORMATION
  Report Type: Spontaneous
  Country: US (occurrence: US)
  Receive Date: 20130206
  Receipt Date: 20130206
  Transmission Date: 20140127
  Serious: No
  Sender: FDA-Public Use
  Company Number: US-ALLERGAN-1201755US

PATIENT
  Age: 88 Year
  Sex: Female

DRUGS (7)
  1. RESTASIS? [Suspect]
     Indication: DRY EYE
     Dosage: 2 GTT, BID
     Route: 047
     Dates: start: 201201
  2. REFRESH OPTIVE [Concomitant]
     Indication: DRY EYE
     Dosage: 2 GTT, PRN
     Route: 047
  3. SYNTHROID [Concomitant]
     Indication: HYPOTHYROIDISM
     Dosage: UNK
  4. NEXIUM                             /01479302/ [Concomitant]
     Indication: GASTROOESOPHAGEAL REFLUX DISEASE
     Dosage: UNK
  5. TYLENOL /00020001/ [Concomitant]
     Indication: PAIN IN EXTREMITY
     Dosage: UNK
  6. DIAZEPAM [Concomitant]
     Indication: INSOMNIA
     Dosage: UNK
  7. GAS X [Concomitant]
     Indication: FLATULENCE
     Dosage: UNK

REACTIONS (3)
  - Wrong technique in drug usage process [Unknown]
  - Vision blurred [Not Recovered/Not Resolved]
  - Lacrimation increased [Not Recovered/Not Resolved]
